FAERS Safety Report 6795807-X (Version None)
Quarter: 2010Q2

REPORT INFORMATION
  Report Type: 
  Country: None (occurrence: None)
  Receive Date: 20100625
  Receipt Date: 20100617
  Transmission Date: 20101027
  Serious: Yes (Hospitalization)
  Sender: FDA-Public Use
  Company Number: A0789967A

PATIENT
  Age: 51 Year
  Sex: Male

DRUGS (9)
  1. AVANDIA [Suspect]
     Indication: DIABETES MELLITUS
     Route: 048
     Dates: start: 20010101, end: 20060101
  2. GLUCOPHAGE [Concomitant]
  3. AMARYL [Concomitant]
  4. ATENOLOL [Concomitant]
  5. LASIX [Concomitant]
  6. ZOCOR [Concomitant]
  7. LOPID [Concomitant]
  8. CELEXA [Concomitant]
  9. FENOPROFEN CALCIUM [Concomitant]

REACTIONS (6)
  - CARDIAC DISORDER [None]
  - CARDIOMYOPATHY [None]
  - CARDIOVASCULAR DISORDER [None]
  - CORONARY ARTERY DISEASE [None]
  - MYOCARDIAL INFARCTION [None]
  - THROMBOSIS [None]
